FAERS Safety Report 8446162-0 (Version None)
Quarter: 2012Q2

REPORT INFORMATION
  Report Type: 
  Country: None (occurrence: None)
  Receive Date: 20120323
  Receipt Date: 20111122
  Transmission Date: 20120825
  Serious: Yes (Other)
  Sender: FDA-Public Use
  Company Number: 163-21880-11090285

PATIENT
  Sex: Female

DRUGS (8)
  1. REVLIMID [Suspect]
     Indication: MULTIPLE MYELOMA
     Dosage: 15;20;12; MG, 1 IN 1 D DAILY 21 DAYS ON, 7 DAYS OFF, PO
     Route: 048
     Dates: start: 20100522
  2. REVLIMID [Suspect]
     Indication: MULTIPLE MYELOMA
     Dosage: 15;20;12; MG, 1 IN 1 D DAILY 21 DAYS ON, 7 DAYS OFF, PO
     Route: 048
     Dates: start: 20110401
  3. REVLIMID [Suspect]
     Indication: MULTIPLE MYELOMA
     Dosage: 15;20;12; MG, 1 IN 1 D DAILY 21 DAYS ON, 7 DAYS OFF, PO
     Route: 048
     Dates: start: 20110421
  4. REVLIMID [Suspect]
     Indication: MULTIPLE MYELOMA
     Dosage: 15;20;12; MG, 1 IN 1 D DAILY 21 DAYS ON, 7 DAYS OFF, PO
     Route: 048
     Dates: start: 20101201
  5. REVLIMID [Suspect]
     Indication: MULTIPLE MYELOMA
     Dosage: 15;20;12; MG, 1 IN 1 D DAILY 21 DAYS ON, 7 DAYS OFF, PO
     Route: 048
     Dates: start: 20110101
  6. DEXAMETHASONE [Concomitant]
  7. GAMMAGARD [Concomitant]
  8. ALKERAN [Concomitant]

REACTIONS (1)
  - THROMBOCYTOPENIA [None]
